FAERS Safety Report 21164506 (Version 1)
Quarter: 2022Q3

REPORT INFORMATION
  Report Type: Spontaneous
  Country: US (occurrence: US)
  Receive Date: 20220803
  Receipt Date: 20220803
  Transmission Date: 20221027
  Serious: Yes (Other)
  Sender: FDA-Public Use
  Company Number: US-LUPIN PHARMACEUTICALS INC.-2022-09981

PATIENT
  Age: 50 Year
  Sex: Male

DRUGS (5)
  1. METHYLPREDNISOLONE [Suspect]
     Active Substance: METHYLPREDNISOLONE
     Indication: Chronic lymphocytic leukaemia
     Dosage: UNK (4 CYCLE; IN COMBINATION WITH RITUXIMAB)
     Route: 065
  2. OBINUTUZUMAB [Suspect]
     Active Substance: OBINUTUZUMAB
     Indication: Chronic lymphocytic leukaemia
     Dosage: UNK (12 CYCLE; IN COMBINATION WITH CHLORAMBUCIL)
     Route: 065
  3. CHLORAMBUCIL [Suspect]
     Active Substance: CHLORAMBUCIL
     Indication: Chronic lymphocytic leukaemia
     Dosage: UNK (12 CYCLE; IN COMBINATION WITH OBINUTUZUMAB)
     Route: 065
  4. RITUXIMAB [Suspect]
     Active Substance: RITUXIMAB
     Indication: Chronic lymphocytic leukaemia
     Dosage: UNK (4 CYCLE; IN COMBINATION WITH METHYLPREDNISOLONE)
     Route: 065
  5. IBRUTINIB [Suspect]
     Active Substance: IBRUTINIB
     Indication: Chronic lymphocytic leukaemia
     Dosage: UNK
     Route: 065

REACTIONS (1)
  - Drug ineffective [Unknown]
